FAERS Safety Report 10620419 (Version 1)
Quarter: 2014Q4

REPORT INFORMATION
  Report Type: Spontaneous
  Country: PT (occurrence: PT)
  Receive Date: 20141202
  Receipt Date: 20141202
  Transmission Date: 20150529
  Serious: Yes (Other)
  Sender: FDA-Public Use
  Company Number: PT-BAYER-2014-173186

PATIENT
  Age: 31 Year
  Sex: Female
  Weight: 64 kg

DRUGS (2)
  1. GINO-CANESTEN CREME VAGINAL [Suspect]
     Active Substance: CLOTRIMAZOLE
     Indication: VAGINAL INFECTION
     Dosage: 1 DF, ONCE DAILY
     Route: 067
     Dates: start: 20141025, end: 20141031
  2. VARFINE [Interacting]
     Active Substance: WARFARIN SODIUM
     Indication: PROPHYLAXIS
     Dosage: 5 MG, QD
     Route: 048

REACTIONS (1)
  - International normalised ratio abnormal [Unknown]

NARRATIVE: CASE EVENT DATE: 20141025
